FAERS Safety Report 23404782 (Version 2)
Quarter: 2024Q1

REPORT INFORMATION
  Report Type: Spontaneous
  Country: US (occurrence: US)
  Receive Date: 20240116
  Receipt Date: 20240131
  Transmission Date: 20240410
  Serious: No
  Sender: FDA-Public Use
  Company Number: US-CASPERPHARMA-US-2024RISSPO00011

PATIENT
  Age: 40 Year
  Sex: Female
  Weight: 118 kg

DRUGS (1)
  1. HYDROCORTISONE\NEOMYCIN\POLYMYXIN B [Suspect]
     Active Substance: HYDROCORTISONE\NEOMYCIN\POLYMYXIN B
     Indication: Psoriasis
     Dosage: 05 DROPS
     Route: 065
     Dates: start: 20231231

REACTIONS (3)
  - Ear pain [Recovered/Resolved]
  - Product use in unapproved indication [Unknown]
  - Product substitution issue [Unknown]

NARRATIVE: CASE EVENT DATE: 20231231
